FAERS Safety Report 10565244 (Version 2)
Quarter: 2014Q4

REPORT INFORMATION
  Report Type: Spontaneous
  Country: CA (occurrence: None)
  Receive Date: 20141103
  Receipt Date: 20141212
  Transmission Date: 20150529
  Serious: Yes (Hospitalization)
  Sender: FDA-Public Use
  Company Number: CAO14015939

PATIENT
  Age: 28 Month
  Sex: Male
  Weight: 11.6 kg

DRUGS (1)
  1. VICKS VAPORUB [Suspect]
     Active Substance: CAMPHOR (SYNTHETIC)\EUCALYPTUS OIL\MENTHOL
     Route: 048
     Dates: start: 20141018, end: 20141018

REACTIONS (4)
  - Exposure via ingestion [None]
  - Vomiting [None]
  - Accidental exposure to product by child [None]
  - Seizure [None]

NARRATIVE: CASE EVENT DATE: 20141018
